FAERS Safety Report 20193494 (Version 1)
Quarter: 2021Q4

REPORT INFORMATION
  Report Type: Spontaneous
  Country: US (occurrence: None)
  Receive Date: 20211215
  Receipt Date: 20211215
  Transmission Date: 20220303
  Serious: Yes (Other)
  Sender: FDA-Public Use
  Company Number: None

PATIENT
  Age: 57 Year
  Sex: Male
  Weight: 72 kg

DRUGS (3)
  1. HERBALS\MITRAGYNINE [Suspect]
     Active Substance: HERBALS\MITRAGYNINE
     Indication: Back pain
     Route: 048
  2. HERBALS\MITRAGYNINE [Suspect]
     Active Substance: HERBALS\MITRAGYNINE
     Indication: Anxiety
  3. HERBALS\MITRAGYNINE [Suspect]
     Active Substance: HERBALS\MITRAGYNINE
     Indication: Post-traumatic stress disorder

REACTIONS (14)
  - Flushing [None]
  - Glassy eyes [None]
  - Agitation [None]
  - Anger [None]
  - Aggression [None]
  - Physical assault [None]
  - Feeling abnormal [None]
  - Aggression [None]
  - Influenza like illness [None]
  - Aggression [None]
  - Screaming [None]
  - Serotonin syndrome [None]
  - Legal problem [None]
  - Substance use [None]

NARRATIVE: CASE EVENT DATE: 20210927
